FAERS Safety Report 15246169 (Version 3)
Quarter: 2022Q2

REPORT INFORMATION
  Report Type: Spontaneous
  Country: LS (occurrence: LS)
  Receive Date: 20180806
  Receipt Date: 20220624
  Transmission Date: 20220720
  Serious: Yes (Death, Hospitalization, Other)
  Sender: FDA-Public Use
  Company Number: LS-VIIV HEALTHCARE LIMITED-LS2018GSK140125

PATIENT

DRUGS (18)
  1. LAMIVUDINE [Suspect]
     Active Substance: LAMIVUDINE
     Indication: HIV infection
     Dosage: 300 MG, QD
     Route: 048
     Dates: start: 20180216
  2. LAMIVUDINE [Suspect]
     Active Substance: LAMIVUDINE
     Dosage: UNK
     Dates: start: 20180713
  3. ZIDOVUDINE [Suspect]
     Active Substance: ZIDOVUDINE
     Indication: HIV infection
     Dosage: UNK
     Dates: start: 20180713
  4. LEVOFLOXACIN [Suspect]
     Active Substance: LEVOFLOXACIN
     Indication: Tuberculosis
     Dosage: 750 MG, QD
     Route: 048
     Dates: start: 20180206
  5. MOXIFLOXACIN [Suspect]
     Active Substance: MOXIFLOXACIN
     Indication: Tuberculosis
     Dosage: 400 MG, QD
     Route: 048
     Dates: start: 20180212, end: 20180715
  6. COTRIMOXAZOLE [Concomitant]
     Active Substance: SULFAMETHOXAZOLE\TRIMETHOPRIM
     Indication: HIV infection
     Dosage: UNK
     Dates: start: 20180205
  7. DELAMANID [Suspect]
     Active Substance: DELAMANID
     Indication: Tuberculosis
     Dosage: 200 MG, QD
     Route: 048
     Dates: start: 20180206, end: 20180715
  8. PYRAZINAMIDE [Suspect]
     Active Substance: PYRAZINAMIDE
     Indication: Tuberculosis
     Dosage: UNK
     Dates: end: 20180403
  9. PYRAZINAMIDE [Suspect]
     Active Substance: PYRAZINAMIDE
     Dosage: 1600 MG, QD
     Route: 048
     Dates: start: 20180206, end: 20180212
  10. PYRAZINAMIDE [Suspect]
     Active Substance: PYRAZINAMIDE
     Dosage: 1600 MG, QD
     Route: 048
     Dates: start: 20180213, end: 20180321
  11. PROTIONAMIDE [Suspect]
     Active Substance: PROTIONAMIDE
     Indication: Tuberculosis
     Dosage: 500 MG, QD
     Route: 048
     Dates: start: 20180206, end: 20180715
  12. CYCLOSERINE [Suspect]
     Active Substance: CYCLOSERINE
     Indication: Tuberculosis
     Dosage: 500 MG, QD
     Route: 048
     Dates: start: 20180206, end: 20180212
  13. LINEZOLID [Suspect]
     Active Substance: LINEZOLID
     Indication: Tuberculosis
     Dosage: UNK
     Dates: end: 20180715
  14. LINEZOLID [Suspect]
     Active Substance: LINEZOLID
     Dosage: 600 MG, QD
     Route: 048
     Dates: start: 20180206, end: 20180314
  15. CLOFAZIMINE [Suspect]
     Active Substance: CLOFAZIMINE
     Indication: Tuberculosis
     Dosage: 100 MG, QD
     Route: 048
     Dates: start: 20180322, end: 20180712
  16. DIPHENHYDRAMINE [Concomitant]
     Active Substance: DIPHENHYDRAMINE
     Indication: Cough
     Dosage: UNK
     Dates: start: 20180205, end: 20180212
  17. TENOFOVIR [Concomitant]
     Active Substance: TENOFOVIR
     Dosage: UNK
     Dates: start: 20180216, end: 20180713
  18. EFAVIRENZ [Concomitant]
     Active Substance: EFAVIRENZ
     Indication: Product used for unknown indication
     Dosage: UNK
     Dates: start: 20180216, end: 20180713

REACTIONS (20)
  - Metabolic acidosis [Fatal]
  - Intestinal ischaemia [Fatal]
  - Vomiting [Fatal]
  - Altered state of consciousness [Recovering/Resolving]
  - Tremor [Recovering/Resolving]
  - Hypophagia [Unknown]
  - Dehydration [Recovering/Resolving]
  - Hypokalaemia [Recovering/Resolving]
  - Pneumocystis jirovecii pneumonia [Unknown]
  - Pulmonary embolism [Unknown]
  - Hyperlactacidaemia [Unknown]
  - Syncope [Unknown]
  - Gamma-glutamyltransferase increased [Unknown]
  - Hypotension [Unknown]
  - Dizziness [Unknown]
  - Feeling drunk [Recovering/Resolving]
  - Alanine aminotransferase increased [Unknown]
  - Aspartate aminotransferase increased [Unknown]
  - Hypothyroidism [Unknown]
  - Oral herpes [Recovering/Resolving]

NARRATIVE: CASE EVENT DATE: 20180209
